FAERS Safety Report 13291625 (Version 3)
Quarter: 2017Q4

REPORT INFORMATION
  Report Type: Spontaneous
  Country: GB (occurrence: GB)
  Receive Date: 20170303
  Receipt Date: 20171110
  Transmission Date: 20180320
  Serious: Yes (Hospitalization, Other)
  Sender: FDA-Public Use
  Company Number: GB-BAYER-2017-035634

PATIENT
  Age: 83 Year
  Sex: Female

DRUGS (1)
  1. CIPROFLOXACIN. [Suspect]
     Active Substance: CIPROFLOXACIN
     Indication: PRODUCT USED FOR UNKNOWN INDICATION
     Dosage: 2 DF, QD

REACTIONS (23)
  - Pain in extremity [Unknown]
  - Musculoskeletal stiffness [Unknown]
  - Peripheral swelling [Unknown]
  - Osteoarthritis [Unknown]
  - Muscular weakness [Unknown]
  - Insomnia [Unknown]
  - Haemorrhage [Unknown]
  - Enuresis [Unknown]
  - Fall [Unknown]
  - Skin ulcer [Unknown]
  - Bladder disorder [Unknown]
  - Impaired healing [Unknown]
  - Musculoskeletal discomfort [Unknown]
  - Arthritis [Unknown]
  - Crying [Unknown]
  - Emotional disorder [Unknown]
  - Alopecia [Unknown]
  - Inflammation [Unknown]
  - Gastrointestinal disorder [Unknown]
  - Nerve injury [Unknown]
  - Neuropathy peripheral [Unknown]
  - Paraesthesia [Unknown]
  - Malaise [Unknown]

NARRATIVE: CASE EVENT DATE: 20130303
